FAERS Safety Report 11641112 (Version 2)
Quarter: 2016Q1

REPORT INFORMATION
  Report Type: Spontaneous
  Country: JP (occurrence: JP)
  Receive Date: 20151019
  Receipt Date: 20160127
  Transmission Date: 20160525
  Serious: Yes (Other)
  Sender: FDA-Public Use
  Company Number: JP-ELI_LILLY_AND_COMPANY-JP201510003944

PATIENT
  Age: 57 Year
  Sex: Female
  Weight: 54.4 kg

DRUGS (11)
  1. TRAMCET [Concomitant]
     Active Substance: ACETAMINOPHEN\TRAMADOL
     Dosage: UNK
     Route: 048
     Dates: start: 20150718
  2. LEVOFLOXACIN. [Concomitant]
     Active Substance: LEVOFLOXACIN
     Indication: POSTOPERATIVE WOUND INFECTION
     Dosage: UNK
     Dates: start: 20150715, end: 20150727
  3. BAKTAR [Suspect]
     Active Substance: SULFAMETHOXAZOLE\TRIMETHOPRIM
     Indication: POSTOPERATIVE WOUND INFECTION
     Dosage: UNK
     Route: 048
     Dates: start: 20150728, end: 20150803
  4. CYMBALTA [Suspect]
     Active Substance: DULOXETINE HYDROCHLORIDE
     Indication: PRODUCT USED FOR UNKNOWN INDICATION
     Dosage: UNK
     Route: 048
     Dates: start: 20150718
  5. CELOOP [Concomitant]
     Dosage: UNK
     Route: 048
     Dates: start: 20150718
  6. MAGLAX [Concomitant]
     Active Substance: MAGNESIUM OXIDE
     Dosage: UNK
     Route: 048
     Dates: start: 20150718
  7. SILECE [Concomitant]
     Active Substance: FLUNITRAZEPAM
     Dosage: UNK
     Route: 048
     Dates: start: 20150718
  8. LYRICA [Concomitant]
     Active Substance: PREGABALIN
     Dosage: UNK
     Route: 048
     Dates: start: 20150718
  9. MEILAX [Concomitant]
     Active Substance: ETHYL LOFLAZEPATE
     Dosage: UNK
     Route: 048
     Dates: start: 20150718
  10. SENNOSIDE                          /00571901/ [Concomitant]
     Active Substance: SENNOSIDES A AND B
     Dosage: UNK
     Route: 048
     Dates: start: 20150718
  11. DESYREL [Concomitant]
     Active Substance: TRAZODONE HYDROCHLORIDE
     Dosage: UNK
     Route: 048
     Dates: start: 20150718

REACTIONS (2)
  - Renal impairment [Recovered/Resolved]
  - Hyperkalaemia [Recovered/Resolved]

NARRATIVE: CASE EVENT DATE: 20150803
